FAERS Safety Report 9558235 (Version 2)
Quarter: 2013Q3

REPORT INFORMATION
  Report Type: Spontaneous
  Country: PL (occurrence: PL)
  Receive Date: 20130926
  Receipt Date: 20130926
  Transmission Date: 20140515
  Serious: Yes (Other)
  Sender: FDA-Public Use
  Company Number: PHHY2012PL003998

PATIENT
  Sex: Female

DRUGS (2)
  1. CICLOSPORIN [Suspect]
     Indication: PSORIASIS
  2. METHOTREXATE [Suspect]
     Indication: PSORIASIS

REACTIONS (7)
  - Psoriasis [Recovering/Resolving]
  - Skin lesion [Recovering/Resolving]
  - Pyrexia [Unknown]
  - General physical health deterioration [Unknown]
  - Hypertension [Unknown]
  - Hepatic enzyme increased [Recovering/Resolving]
  - Drug ineffective [Unknown]
